FAERS Safety Report 8852911 (Version 3)
Quarter: 2013Q1

REPORT INFORMATION
  Report Type: Spontaneous
  Country: US (occurrence: US)
  Receive Date: 20121022
  Receipt Date: 20130322
  Transmission Date: 20140127
  Serious: Yes (Death, Hospitalization, Disabling, Other)
  Sender: FDA-Public Use
  Company Number: US-009507513-1210USA005983

PATIENT
  Sex: Female
  Weight: 65.31 kg

DRUGS (3)
  1. FOSAMAX [Suspect]
     Indication: OSTEOPOROSIS
     Dosage: 10 MG, UNK
     Route: 048
     Dates: end: 200104
  2. FOSAMAX [Suspect]
     Dosage: 35 MG, UNK
     Route: 048
     Dates: start: 20010625, end: 200204
  3. FOSAMAX [Suspect]
     Dosage: 70 MG, QW
     Route: 048
     Dates: start: 20030410, end: 200801

REACTIONS (36)
  - Femur fracture [Not Recovered/Not Resolved]
  - Chronic obstructive pulmonary disease [Fatal]
  - Cardio-respiratory arrest [Fatal]
  - Fall [Not Recovered/Not Resolved]
  - Open reduction of fracture [Unknown]
  - Low turnover osteopathy [Not Recovered/Not Resolved]
  - Urinary tract infection [Unknown]
  - Dyspnoea [Unknown]
  - Spinal laminectomy [Unknown]
  - Hypoacusis [Unknown]
  - Spinal operation [Unknown]
  - Salivary gland cancer [Unknown]
  - Spinal decompression [Not Recovered/Not Resolved]
  - Shoulder arthroplasty [Unknown]
  - Hip arthroplasty [Unknown]
  - Aspartate aminotransferase increased [Unknown]
  - Myocardial infarction [Unknown]
  - Blood cholesterol increased [Unknown]
  - Hypertension [Unknown]
  - Spinal column stenosis [Unknown]
  - Scoliosis [Unknown]
  - Nephrolithiasis [Unknown]
  - Nephrolithiasis [Unknown]
  - Neuropathy peripheral [Unknown]
  - Fall [Unknown]
  - Depression [Unknown]
  - Anaemia of chronic disease [Unknown]
  - Anxiety [Unknown]
  - Cervical myelopathy [Unknown]
  - Carotid artery occlusion [Unknown]
  - Otorrhoea [Not Recovered/Not Resolved]
  - Cognitive disorder [Not Recovered/Not Resolved]
  - Spinal osteoarthritis [Unknown]
  - Intervertebral disc disorder [Unknown]
  - Abdominal discomfort [Unknown]
  - Oedema peripheral [Recovered/Resolved]
